FAERS Safety Report 24080132 (Version 1)
Quarter: 2024Q3

REPORT INFORMATION
  Report Type: Spontaneous
  Country: US (occurrence: None)
  Receive Date: 20240711
  Receipt Date: 20240711
  Transmission Date: 20241017
  Serious: Yes (Other)
  Sender: Public
  Company Number: None

PATIENT
  Age: 83 Year
  Sex: Female
  Weight: 59.4 kg

DRUGS (7)
  1. XARELTO [Suspect]
     Active Substance: RIVAROXABAN
     Indication: Peripheral arterial occlusive disease
     Dosage: 1 DROP TWICE A DAY ORAL
     Route: 048
     Dates: start: 20230819, end: 20240706
  2. EZETIMIBE [Concomitant]
     Active Substance: EZETIMIBE
  3. CYABICIBAKANUB [Concomitant]
  4. LEVOTHYROXINE [Concomitant]
     Active Substance: LEVOTHYROXINE\LEVOTHYROXINE SODIUM
  5. ASPIRIN [Concomitant]
     Active Substance: ASPIRIN
  6. CALCIUM/VIT D [Concomitant]
  7. FICYS AREDS2 [Concomitant]

REACTIONS (5)
  - Angioedema [None]
  - Swelling face [None]
  - Erythema [None]
  - Pruritus [None]
  - Gingival bleeding [None]

NARRATIVE: CASE EVENT DATE: 20240701
